FAERS Safety Report 8531083-5 (Version None)
Quarter: 2012Q3

REPORT INFORMATION
  Report Type: 
  Country: None (occurrence: None)
  Receive Date: 20120723
  Receipt Date: 20120711
  Transmission Date: 20120928
  Serious: Yes (Other)
  Sender: FDA-Public Use
  Company Number: JP-VERTEX PHARMACEUTICALS INC.-AE-2012-010475

PATIENT
  Age: 62 Year
  Sex: Male

DRUGS (6)
  1. RIBAVIRIN [Concomitant]
     Indication: HEPATITIS C
     Route: 048
     Dates: start: 20120522, end: 20120618
  2. PEGINTERFERON ALFA-2B [Concomitant]
     Route: 058
     Dates: start: 20120619
  3. RIBAVIRIN [Concomitant]
     Route: 048
     Dates: start: 20120619
  4. ALLOPURINOL [Concomitant]
     Route: 048
     Dates: start: 20120525
  5. PEGINTERFERON ALFA-2B [Concomitant]
     Indication: HEPATITIS C
     Route: 058
     Dates: start: 20120522, end: 20120612
  6. TELAVIC (TELAPREVIR) [Suspect]
     Indication: HEPATITIS C
     Route: 048
     Dates: start: 20120522

REACTIONS (1)
  - NEUTROPHIL COUNT DECREASED [None]
